FAERS Safety Report 5425659-1 (Version None)
Quarter: 2007Q3

REPORT INFORMATION
  Report Type: 
  Country: None (occurrence: None)
  Receive Date: 20070824
  Receipt Date: 20070814
  Transmission Date: 20080115
  Serious: Yes (Other)
  Sender: FDA-Public Use
  Company Number: US-PFIZER INC-2007068621

PATIENT
  Sex: Female
  Weight: 60.909 kg

DRUGS (8)
  1. CHANTIX [Suspect]
     Indication: SMOKING CESSATION THERAPY
  2. PERCOCET [Concomitant]
  3. SYNTHROID [Concomitant]
  4. PROTONIX [Concomitant]
  5. DIAZEPAM [Concomitant]
  6. NYSTATIN [Concomitant]
  7. ISOSORBIDE MONONITRATE [Concomitant]
  8. DILAUDID [Concomitant]

REACTIONS (2)
  - DRUG INEFFECTIVE [None]
  - LYME DISEASE [None]
